FAERS Safety Report 8556723 (Version 4)
Quarter: 2012Q4

REPORT INFORMATION
  Report Type: 
  Country: US (occurrence: US)
  Receive Date: 20120510
  Receipt Date: 20120913
  Transmission Date: 20130627
  Serious: Yes (Other)
  Sender: FDA-Public Use
  Company Number: CHPA2012US009929

PATIENT
  Age: 68 Year
  Sex: Female

DRUGS (1)
  1. EXCEDRIN TENSION HEADACHE [Suspect]
     Indication: HEADACHE
     Dosage: 1-2 DF, Unk
     Route: 048
     Dates: end: 20120423

REACTIONS (5)
  - Chest pain [Not Recovered/Not Resolved]
  - Dyspnoea [Recovered/Resolved]
  - Back pain [Not Recovered/Not Resolved]
  - General physical health deterioration [Unknown]
  - Underdose [Unknown]
